FAERS Safety Report 20125220 (Version 1)
Quarter: 2021Q4

REPORT INFORMATION
  Report Type: Spontaneous
  Country: US (occurrence: None)
  Receive Date: 20211127
  Receipt Date: 20211127
  Transmission Date: 20220303
  Serious: No
  Sender: FDA-Public Use
  Company Number: None

PATIENT
  Age: 67 Year
  Sex: Male
  Weight: 76.5 kg

DRUGS (1)
  1. ROCKLATAN [Suspect]
     Active Substance: LATANOPROST\NETARSUDIL MESYLATE
     Indication: Intraocular pressure increased
     Dosage: OTHER STRENGTH : UNSURE;?OTHER QUANTITY : 1 DROP(S);?FREQUENCY : AT BEDTIME;?
     Route: 047
     Dates: start: 20211123, end: 20211123

REACTIONS (3)
  - Ocular hyperaemia [None]
  - Visual acuity reduced [None]
  - Metamorphopsia [None]

NARRATIVE: CASE EVENT DATE: 20211124
